FAERS Safety Report 7277277-0 (Version None)
Quarter: 2011Q1

REPORT INFORMATION
  Report Type: 
  Country: None (occurrence: None)
  Receive Date: 20110202
  Receipt Date: 20110202
  Transmission Date: 20110831
  Serious: Yes (Other)
  Sender: FDA-Public Use
  Company Number: None

PATIENT
  Age: 66 Year
  Sex: Female
  Weight: 67.7674 kg

DRUGS (10)
  1. OSCAL + D [Concomitant]
  2. QVAR 40 [Concomitant]
  3. ALBUTEROL [Concomitant]
  4. IBUPROFEN [Concomitant]
  5. ALENDRONATE SODIUM [Suspect]
     Indication: OSTEOPOROSIS
     Dosage: 1 DAILY PO
     Route: 048
     Dates: start: 20091001, end: 20110125
  6. LEVOTHYROXINE SODIUM [Concomitant]
  7. LIPITOR [Concomitant]
  8. FLONASE [Concomitant]
  9. ASPIRIN [Concomitant]
  10. OMEPRAZOLE [Concomitant]

REACTIONS (2)
  - OSTEONECROSIS [None]
  - HIP FRACTURE [None]
